FAERS Safety Report 8624392-2 (Version None)
Quarter: 2012Q3

REPORT INFORMATION
  Report Type: 
  Country: None (occurrence: None)
  Receive Date: 20120827
  Receipt Date: 20120821
  Transmission Date: 20120928
  Serious: Yes (Hospitalization)
  Sender: FDA-Public Use
  Company Number: PT-PFIZER INC-2012205615

PATIENT
  Age: 70 Year
  Sex: Female

DRUGS (3)
  1. VASTAREL LM [Concomitant]
     Dosage: UNK
     Route: 048
  2. ATORVASTATIN CALCIUM [Suspect]
     Indication: HYPERCHOLESTEROLAEMIA
     Dosage: 10 MG, 1X/DAY
     Route: 048
     Dates: start: 20111101, end: 20111201
  3. ALENDRONATE SODIUM [Concomitant]
     Dosage: UNK
     Route: 048

REACTIONS (2)
  - MUSCULOSKELETAL PAIN [None]
  - PRURITUS [None]
